FAERS Safety Report 10418692 (Version 1)
Quarter: 2014Q2

REPORT INFORMATION
  Report Type: Spontaneous
  Country: US (occurrence: None)
  Receive Date: 20140616
  Receipt Date: 20140616
  Transmission Date: 20141212
  Serious: No
  Sender: FDA-Public Use
  Company Number: 2014-000682

PATIENT
  Sex: Female

DRUGS (8)
  1. ACTONEL [Suspect]
     Indication: OSTEOPOROSIS
     Dosage: UNKNOWN, ORAL
     Route: 048
  2. ACTONEL [Suspect]
     Indication: PROPHYLAXIS
     Dosage: UNKNOWN, ORAL
     Route: 048
  3. FOSAMAX (ALENDRONATE SODIUM) [Suspect]
     Indication: OSTEOPOROSIS
     Dosage: UNKNOWN, ORAL
     Route: 048
  4. FOSAMAX (ALENDRONATE SODIUM) [Suspect]
     Indication: PROPHYLAXIS
     Dosage: UNKNOWN, ORAL
     Route: 048
  5. BONIVA (IBANDRONATE SODIUM) [Suspect]
     Indication: OSTEOPOROSIS
  6. BONIVA (IBANDRONATE SODIUM) [Suspect]
     Indication: PROPHYLAXIS
  7. RECLAST [Suspect]
     Indication: OSTEOPOROSIS
  8. RECLAST [Suspect]
     Indication: PROPHYLAXIS

REACTIONS (5)
  - Femur fracture [None]
  - Pathological fracture [None]
  - Bone disorder [None]
  - Stress fracture [None]
  - Low turnover osteopathy [None]
